FAERS Safety Report 25151124 (Version 1)
Quarter: 2025Q2

REPORT INFORMATION
  Report Type: Spontaneous
  Country: US (occurrence: US)
  Receive Date: 20250402
  Receipt Date: 20250402
  Transmission Date: 20250717
  Serious: No
  Sender: SANOFI AVENTIS
  Company Number: US-SA-2025SA092292

PATIENT
  Age: 57 Year
  Sex: Male

DRUGS (1)
  1. DUPIXENT [Suspect]
     Active Substance: DUPILUMAB
     Indication: Neurodermatitis
     Dosage: 300MG, QOW
     Route: 058
     Dates: start: 202304

REACTIONS (2)
  - Neurodermatitis [Unknown]
  - Rash [Unknown]

NARRATIVE: CASE EVENT DATE: 20250201
